FAERS Safety Report 25791280 (Version 1)
Quarter: 2025Q3

REPORT INFORMATION
  Report Type: Spontaneous
  Country: EU (occurrence: EU)
  Receive Date: 20250911
  Receipt Date: 20250911
  Transmission Date: 20251021
  Serious: Yes (Death, Hospitalization)
  Sender: MYLAN
  Company Number: EU-MYLANLABS-2025M1076134

PATIENT
  Age: 35 Year
  Sex: Female

DRUGS (2)
  1. EPINEPHRINE [Suspect]
     Active Substance: EPINEPHRINE
     Indication: Ventricular fibrillation
  2. AMIODARONE [Suspect]
     Active Substance: AMIODARONE
     Indication: Ventricular fibrillation

REACTIONS (1)
  - Drug ineffective [Fatal]
